FAERS Safety Report 6167491-X (Version None)
Quarter: 2009Q2

REPORT INFORMATION
  Report Type: 
  Country: None (occurrence: None)
  Receive Date: 20090424
  Receipt Date: 20090423
  Transmission Date: 20091009
  Serious: Yes (Hospitalization)
  Sender: FDA-Public Use
  Company Number: ES-WYE-G02688808

PATIENT
  Age: 65 Year
  Sex: Female

DRUGS (5)
  1. RAPAMUNE [Suspect]
     Indication: PROPHYLAXIS AGAINST TRANSPLANT REJECTION
     Route: 048
     Dates: start: 20080623, end: 20080904
  2. CELLCEPT [Interacting]
     Indication: PROPHYLAXIS AGAINST TRANSPLANT REJECTION
     Route: 048
     Dates: start: 20080623, end: 20080904
  3. ARANESP [Concomitant]
     Dosage: UNKNOWN WEEKLY
     Route: 058
  4. OMEPRAZOLE [Concomitant]
     Route: 048
  5. PREDNISONE [Interacting]
     Indication: PROPHYLAXIS AGAINST TRANSPLANT REJECTION
     Route: 048
     Dates: start: 20080623, end: 20080904

REACTIONS (2)
  - CYTOMEGALOVIRUS INFECTION [None]
  - DRUG INTERACTION [None]
